FAERS Safety Report 22132844 (Version 1)
Quarter: 2023Q1

REPORT INFORMATION
  Report Type: Spontaneous
  Country: RO (occurrence: RO)
  Receive Date: 20230323
  Receipt Date: 20230323
  Transmission Date: 20230417
  Serious: Yes (Other)
  Sender: FDA-Public Use
  Company Number: RO-PFIZER INC-PV202300046857

PATIENT
  Age: 54 Year
  Sex: Female

DRUGS (4)
  1. DENOSUMAB [Suspect]
     Active Substance: DENOSUMAB
     Indication: Breast cancer metastatic
     Dosage: 120 MILLIGRAM, CYCLIC, EVERY 28 DAYS
     Route: 065
     Dates: start: 201804
  2. LETROZOLE [Suspect]
     Active Substance: LETROZOLE
     Indication: Breast cancer metastatic
     Dosage: 2.5 MILLIGRAM, QD
     Route: 065
     Dates: start: 201804
  3. PALBOCICLIB [Suspect]
     Active Substance: PALBOCICLIB
     Indication: Breast cancer metastatic
     Dosage: ONE DOSE CHANGE IN 5 YEAR
     Route: 065
  4. PALBOCICLIB [Suspect]
     Active Substance: PALBOCICLIB
     Dosage: 125 MILLIGRAM, DAILY ON DAY 1-21
     Route: 065
     Dates: start: 201804

REACTIONS (4)
  - Leukopenia [Unknown]
  - Neutropenia [Unknown]
  - Neoplasm progression [Unknown]
  - Hepatic steatosis [Unknown]

NARRATIVE: CASE EVENT DATE: 20210101
